FAERS Safety Report 16638853 (Version 1)
Quarter: 2019Q3

REPORT INFORMATION
  Report Type: Spontaneous
  Country: GR (occurrence: GR)
  Receive Date: 20190726
  Receipt Date: 20190726
  Transmission Date: 20191004
  Serious: Yes (Hospitalization)
  Sender: FDA-Public Use
  Company Number: PHHY2019GR169869

PATIENT

DRUGS (5)
  1. GLUCOPLUS GENER [Concomitant]
     Indication: DIABETES MELLITUS
     Dosage: 1000 MG, (1/2 X 2)
     Route: 065
  2. ATORVASTATIN [Concomitant]
     Active Substance: ATORVASTATIN
     Indication: HYPERCHOLESTEROLAEMIA
     Dosage: UNK UNK, QD
     Route: 065
  3. T4 [Concomitant]
     Active Substance: LEVOTHYROXINE
     Indication: HYPERTHYROIDISM
     Dosage: 150 UG, QD
     Route: 065
  4. COPALIA HCT [Suspect]
     Active Substance: AMLODIPINE\HYDROCHLOROTHIAZIDE\VALSARTAN
     Indication: HYPERTENSION
     Dosage: 10/160 /12.5, QD
     Route: 065
  5. JARDIANCE [Concomitant]
     Active Substance: EMPAGLIFLOZIN
     Indication: DIABETES MELLITUS
     Dosage: 2.5 MG, QD
     Route: 065

REACTIONS (3)
  - Acute myocardial infarction [Unknown]
  - Troponin increased [Unknown]
  - Angina pectoris [Unknown]
